FAERS Safety Report 6164047-X (Version None)
Quarter: 2009Q2

REPORT INFORMATION
  Report Type: 
  Country: None (occurrence: None)
  Receive Date: 20090422
  Receipt Date: 20090413
  Transmission Date: 20091009
  Serious: Yes (Death)
  Sender: FDA-Public Use
  Company Number: US-KINGPHARMUSA00001-K200900428

PATIENT
  Age: 31 Year
  Sex: Male

DRUGS (10)
  1. ALTACE [Suspect]
     Dosage: 2.5 MG, QD
     Route: 048
     Dates: end: 20090107
  2. SEPTRA [Suspect]
     Dosage: 1 DF, QD
     Route: 048
     Dates: start: 20090106, end: 20090107
  3. SOLUPRED                           /00016209/ [Suspect]
     Dosage: 10 MG, QD
     Route: 048
     Dates: end: 20090107
  4. PLAVIX [Suspect]
     Dosage: 75 MG, QD
     Route: 048
     Dates: end: 20090107
  5. OCTAGAM [Suspect]
     Dosage: 30 MG, INFUSION
     Route: 042
     Dates: start: 20090106, end: 20090107
  6. PROGRAF [Suspect]
     Dosage: 4 MG, QD
     Route: 048
     Dates: end: 20090107
  7. CELLCEPT [Suspect]
     Dosage: 2 MG, UNK
     Route: 048
  8. CARDENSIEL [Suspect]
     Dosage: 1.25 MG, UNK
     Route: 048
     Dates: end: 20090107
  9. KARDEGIC                           /00002703/ [Suspect]
     Dosage: 75 MG, UNK
     Route: 048
     Dates: end: 20090107
  10. VASTEN                             /00880402/ [Suspect]
     Dosage: 20 MG, UNK
     Route: 048
     Dates: end: 20090107

REACTIONS (11)
  - CARDIAC ARREST [None]
  - CARDIO-RESPIRATORY ARREST [None]
  - CONVULSION [None]
  - CYANOSIS [None]
  - DYSPNOEA [None]
  - MALAISE [None]
  - NAUSEA [None]
  - PAINFUL RESPIRATION [None]
  - PULMONARY EMBOLISM [None]
  - VENTRICULAR FIBRILLATION [None]
  - VOMITING [None]
